FAERS Safety Report 22111484 (Version 10)
Quarter: 2024Q2

REPORT INFORMATION
  Report Type: Report from Study
  Country: US (occurrence: US)
  Receive Date: 20230317
  Receipt Date: 20240403
  Transmission Date: 20240715
  Serious: Yes (Other)
  Sender: FDA-Public Use
  Company Number: US-002147023-NVSC2023US058443

PATIENT
  Age: 56 Year
  Sex: Female

DRUGS (1)
  1. KESIMPTA [Suspect]
     Active Substance: OFATUMUMAB
     Indication: Multiple sclerosis
     Dosage: 20 MG, QMO
     Route: 058
     Dates: start: 20230122

REACTIONS (7)
  - Fall [Unknown]
  - Upper limb fracture [Unknown]
  - Influenza like illness [Recovered/Resolved]
  - Influenza like illness [Recovered/Resolved]
  - Palpitations [Unknown]
  - Depression [Unknown]
  - Stress [Unknown]

NARRATIVE: CASE EVENT DATE: 20230205
